FAERS Safety Report 19960895 (Version 1)
Quarter: 2021Q4

REPORT INFORMATION
  Report Type: Other
  Country: US (occurrence: US)
  Receive Date: 20211016
  Receipt Date: 20211016
  Transmission Date: 20220303
  Serious: Yes (Hospitalization)
  Sender: FDA-Public Use
  Company Number: US-ROCHE-2934778

PATIENT
  Sex: Female

DRUGS (1)
  1. OCREVUS [Suspect]
     Active Substance: OCRELIZUMAB
     Indication: Primary progressive multiple sclerosis
     Dosage: DATE OF TREATMENT: 05/FEB/2018, 19/FEB/2018, 19/AUG/2018, 18/FEB/2019, 22/JAN/2020, 05/FEB/2020, 12/
     Route: 065
     Dates: start: 20180202

REACTIONS (1)
  - Clostridium difficile infection [Recovered/Resolved]
